FAERS Safety Report 8861197 (Version 1)
Quarter: 2012Q4

REPORT INFORMATION
  Report Type: 
  Country: FR (occurrence: FR)
  Receive Date: 20121026
  Receipt Date: 20121026
  Transmission Date: 20130627
  Serious: Yes (Other)
  Sender: FDA-Public Use
  Company Number: FR-AMGEN-FRASP2012067496

PATIENT
  Age: 64 Year
  Sex: Male

DRUGS (2)
  1. VECTIBIX [Suspect]
     Indication: PRODUCT USED FOR UNKNOWN INDICATION
     Dosage: 34.4 mg (516mg, 2 in 1 month)
     Route: 042
     Dates: start: 20120328, end: 20120822
  2. FOLFIRI [Concomitant]

REACTIONS (5)
  - Inflammation [Recovering/Resolving]
  - Dermatitis acneiform [Recovering/Resolving]
  - Skin fissures [Recovering/Resolving]
  - Conjunctivitis infective [Recovering/Resolving]
  - Hypokalaemia [Recovering/Resolving]
